FAERS Safety Report 16456538 (Version 2)
Quarter: 2019Q2

REPORT INFORMATION
  Report Type: Spontaneous
  Country: PL (occurrence: PL)
  Receive Date: 20190620
  Receipt Date: 20190624
  Transmission Date: 20190711
  Serious: Yes (Other)
  Sender: FDA-Public Use
  Company Number: PL-EMD SERONO-E2B_90068640

PATIENT
  Age: 55 Year
  Sex: Female

DRUGS (1)
  1. REBIF [Suspect]
     Active Substance: INTERFERON BETA-1A
     Indication: MULTIPLE SCLEROSIS
     Dosage: FORM STRENGTH: 44 (UNSPECIFIED UNIT)
     Route: 058
     Dates: start: 20181008, end: 20190102

REACTIONS (2)
  - Injection site erythema [Recovering/Resolving]
  - Alopecia [Recovering/Resolving]
